FAERS Safety Report 18324390 (Version 1)
Quarter: 2020Q3

REPORT INFORMATION
  Report Type: Spontaneous
  Country: US (occurrence: US)
  Receive Date: 20200929
  Receipt Date: 20200929
  Transmission Date: 20201103
  Serious: No
  Sender: FDA-Public Use
  Company Number: None

PATIENT
  Age: 75 Year
  Sex: Female

DRUGS (7)
  1. LOSARTAN/HCT TAB 100?25 [Concomitant]
     Dates: start: 20200929
  2. FLUTICASONE SPR 50MCG [Concomitant]
     Active Substance: FLUTICASONE
     Dates: start: 20200831
  3. ENBREL [Suspect]
     Active Substance: ETANERCEPT
     Indication: PSORIATIC ARTHROPATHY
     Dosage: ?          OTHER FREQUENCY:EVERY WEEK;?
     Route: 058
     Dates: start: 20200206
  4. METHOTREXATE TAB 2.5MG [Concomitant]
     Active Substance: METHOTREXATE
     Dates: start: 20200727
  5. ALBUTEROL AER HFA [Concomitant]
     Dates: start: 20200904
  6. OMEGA?3 ACID CAP 1GM [Concomitant]
     Dates: start: 20200918
  7. FOLIC ACID TAB 1MG [Concomitant]
     Dates: start: 20200807

REACTIONS (1)
  - Basal cell carcinoma [None]

NARRATIVE: CASE EVENT DATE: 20200909
